FAERS Safety Report 24338089 (Version 1)
Quarter: 2024Q3

REPORT INFORMATION
  Report Type: Spontaneous
  Country: NL (occurrence: NL)
  Receive Date: 20240919
  Receipt Date: 20240919
  Transmission Date: 20241016
  Serious: Yes (Other)
  Sender: RANBAXY
  Company Number: NL-SUN PHARMACEUTICAL INDUSTRIES LTD-2024RR-468578

PATIENT
  Age: 72 Year
  Sex: Male
  Weight: 70 kg

DRUGS (2)
  1. TAMSULOSIN [Suspect]
     Active Substance: TAMSULOSIN
     Indication: Micturition disorder
     Dosage: 1X PER DAY 1 PIECE
     Route: 065
     Dates: start: 20240610, end: 20240613
  2. ALENDRONIC ACID [Concomitant]
     Active Substance: ALENDRONIC ACID
     Indication: Product used for unknown indication
     Dosage: TABLET, 70 MG (MILLIGRAM)
     Route: 065

REACTIONS (2)
  - Haematuria [Recovered/Resolved]
  - Influenza like illness [Recovered/Resolved]
